FAERS Safety Report 16435745 (Version 1)
Quarter: 2019Q2

REPORT INFORMATION
  Report Type: Spontaneous
  Country: US (occurrence: US)
  Receive Date: 20190614
  Receipt Date: 20190614
  Transmission Date: 20190711
  Serious: No
  Sender: FDA-Public Use
  Company Number: US-JNJFOC-20170428589

PATIENT
  Sex: Female
  Weight: 46.72 kg

DRUGS (4)
  1. PENTASA [Concomitant]
     Active Substance: MESALAMINE
     Indication: PRODUCT USED FOR UNKNOWN INDICATION
     Dosage: 2-4X A DAY AS NEEDED
     Route: 065
  2. TYLENOL EXTRA STRENGTH [Suspect]
     Active Substance: ACETAMINOPHEN
     Indication: LYMPH NODE PAIN
     Dosage: AS NEEDED
     Route: 048
     Dates: start: 20170420
  3. REMICADE [Concomitant]
     Active Substance: INFLIXIMAB
     Indication: CROHN^S DISEASE
     Dosage: 2 MONTHS
     Route: 042
     Dates: start: 20170330
  4. TYLENOL EXTRA STRENGTH [Suspect]
     Active Substance: ACETAMINOPHEN
     Indication: LYMPHADENOPATHY
     Dosage: AS NEEDED
     Route: 048
     Dates: start: 20170420

REACTIONS (1)
  - Drug ineffective for unapproved indication [Unknown]
